FAERS Safety Report 9379262 (Version 1)
Quarter: 2013Q3

REPORT INFORMATION
  Report Type: Spontaneous
  Country: DK (occurrence: US)
  Receive Date: 20130702
  Receipt Date: 20130702
  Transmission Date: 20140515
  Serious: Yes (Hospitalization)
  Sender: FDA-Public Use
  Company Number: US-FRI-1000046347

PATIENT
  Age: 59 Year
  Sex: Female

DRUGS (12)
  1. CITALOPRAM [Suspect]
     Indication: DEPRESSION
     Dosage: 40 MG
     Route: 048
     Dates: start: 20130201, end: 20130514
  2. AZILECT [Interacting]
     Indication: PARKINSON^S DISEASE
     Dosage: 1MG
     Route: 048
     Dates: start: 2011
  3. STRATTERA [Interacting]
     Indication: MEMORY IMPAIRMENT
     Route: 048
     Dates: start: 20130409, end: 20130514
  4. STRATTERA [Interacting]
     Indication: DISTURBANCE IN ATTENTION
  5. CLONAZEPAM [Concomitant]
     Indication: RAPID EYE MOVEMENTS SLEEP ABNORMAL
     Dosage: 0.5 MG
     Route: 048
  6. TRAZODONE [Concomitant]
     Indication: RAPID EYE MOVEMENTS SLEEP ABNORMAL
     Dosage: 50 MG
     Route: 048
  7. LEVOXYL [Concomitant]
     Indication: AUTOIMMUNE THYROIDITIS
     Dosage: 137 MCG
     Route: 048
  8. GABAPENTIN [Concomitant]
     Indication: RESTLESS LEGS SYNDROME
     Dosage: 900 MG
     Route: 048
  9. MIRAPEX [Concomitant]
     Indication: RESTLESS LEGS SYNDROME
     Dosage: 1 MG
     Route: 048
  10. NEXIUM [Concomitant]
     Indication: GASTROOESOPHAGEAL REFLUX DISEASE
     Dosage: 80 MG
     Route: 048
  11. FEMHRT [Concomitant]
     Indication: HORMONE THERAPY
     Dosage: 1/5
     Route: 048
  12. PROLIA [Concomitant]
     Indication: OSTEOPOROSIS

REACTIONS (3)
  - Movement disorder [Recovered/Resolved]
  - Muscle contractions involuntary [Recovered/Resolved]
  - Drug interaction [Recovered/Resolved]
